FAERS Safety Report 24125736 (Version 3)
Quarter: 2024Q3

REPORT INFORMATION
  Report Type: Spontaneous
  Country: TW (occurrence: TW)
  Receive Date: 20240723
  Receipt Date: 20240806
  Transmission Date: 20241017
  Serious: Yes (Death, Life-Threatening, Hospitalization, Other)
  Sender: PFIZER
  Company Number: TW-PFIZER INC-PV202400095326

PATIENT
  Sex: Female

DRUGS (1)
  1. XELJANZ [Suspect]
     Active Substance: TOFACITINIB CITRATE
     Indication: Rheumatoid arthritis
     Dosage: 5 MG, 2X/DAY
     Route: 048
     Dates: start: 20230711, end: 202407

REACTIONS (2)
  - Septic shock [Fatal]
  - Nephrolithiasis [Fatal]

NARRATIVE: CASE EVENT DATE: 20240709
